FAERS Safety Report 4861648-3 (Version None)
Quarter: 2005Q4

REPORT INFORMATION
  Report Type: 
  Country: None (occurrence: None)
  Receive Date: 20051130
  Receipt Date: 20050712
  Transmission Date: 20060501
  Serious: Yes (Other)
  Sender: FDA-Public Use
  Company Number: 200510222BWH

PATIENT
  Age: 61 Year
  Sex: Male

DRUGS (15)
  1. CIPRO [Suspect]
     Indication: TOOTH INFECTION
     Dosage: 500 MG, BID, ORAL
     Route: 048
     Dates: start: 20040415, end: 20040421
  2. CIPRO [Suspect]
     Indication: TOOTH INFECTION
     Dosage: 500 MG, BID, ORAL
     Route: 048
     Dates: start: 20040423, end: 20040426
  3. CLINDAMYCIN [Concomitant]
  4. BIAXIN [Concomitant]
  5. CEFADROXIL [Concomitant]
  6. OMNICEF [Concomitant]
  7. KETOPROFEN [Concomitant]
  8. METHYLPREDNISOLONE [Concomitant]
  9. GABAPENTIN [Concomitant]
  10. FLONASE [Concomitant]
  11. AMBIEN [Concomitant]
  12. HYDROCHLOROTHIAZIDE [Concomitant]
  13. LISINOPRIL [Concomitant]
  14. ASPIRIN [Concomitant]
  15. PERIOSTAT [Concomitant]

REACTIONS (7)
  - BURNING SENSATION [None]
  - GOUT [None]
  - NEUROPATHY PERIPHERAL [None]
  - ORAL CANDIDIASIS [None]
  - PAIN IN EXTREMITY [None]
  - PHARYNGOLARYNGEAL PAIN [None]
  - TENDON DISORDER [None]
